FAERS Safety Report 9113344 (Version 1)
Quarter: 2013Q1

REPORT INFORMATION
  Report Type: Report from Study
  Country: US (occurrence: US)
  Receive Date: 20130129
  Receipt Date: 20130129
  Transmission Date: 20140127
  Serious: No
  Sender: FDA-Public Use
  Company Number: US-ABBOTT-12P-163-0936570-00

PATIENT
  Age: 28 Year
  Sex: Female

DRUGS (6)
  1. HUMIRA 40 MG/0.8 ML PEN [Suspect]
     Indication: CROHN^S DISEASE
     Dosage: 160 MG ON 09 MAY 2012
     Dates: start: 20120509
  2. HUMIRA 40 MG/0.8 ML PEN [Suspect]
     Route: 058
     Dates: start: 20120511
  3. ATIVAN [Concomitant]
     Indication: ANXIETY
  4. PROZAC [Concomitant]
     Indication: DEPRESSION
     Route: 048
  5. HYDROCODONE [Concomitant]
     Indication: PAIN
     Dosage: 5/500 MG TID
     Route: 048
  6. IBUPROFEN [Concomitant]
     Indication: PAIN
     Dosage: 1 - 2 DAILY
     Route: 048

REACTIONS (11)
  - Oropharyngeal pain [Not Recovered/Not Resolved]
  - Rhinitis [Not Recovered/Not Resolved]
  - Pyrexia [Not Recovered/Not Resolved]
  - Body temperature increased [Not Recovered/Not Resolved]
  - Fatigue [Not Recovered/Not Resolved]
  - Pharyngitis streptococcal [Not Recovered/Not Resolved]
  - Rash macular [Not Recovered/Not Resolved]
  - Rash [Not Recovered/Not Resolved]
  - Rash pruritic [Not Recovered/Not Resolved]
  - Rash erythematous [Not Recovered/Not Resolved]
  - Swelling [Not Recovered/Not Resolved]
